FAERS Safety Report 16124806 (Version 1)
Quarter: 2019Q1

REPORT INFORMATION
  Report Type: Spontaneous
  Country: IT (occurrence: IT)
  Receive Date: 20190327
  Receipt Date: 20190327
  Transmission Date: 20190418
  Serious: Yes (Other)
  Sender: FDA-Public Use
  Company Number: IT-GUERBET-IT-20190046

PATIENT
  Age: 23 Year
  Sex: Female
  Weight: 48 kg

DRUGS (1)
  1. DOTAREM [Suspect]
     Active Substance: GADOTERATE MEGLUMINE
     Indication: SCAN WITH CONTRAST
     Route: 042
     Dates: start: 20190301, end: 20190301

REACTIONS (2)
  - Rash [Recovering/Resolving]
  - Dyspnoea [Recovering/Resolving]

NARRATIVE: CASE EVENT DATE: 20190301
